FAERS Safety Report 7174635-X (Version None)
Quarter: 2010Q4

REPORT INFORMATION
  Report Type: 
  Country: None (occurrence: None)
  Receive Date: 20101219
  Receipt Date: 20100405
  Transmission Date: 20110411
  Serious: Yes (Hospitalization)
  Sender: FDA-Public Use
  Company Number: US-AMGEN-KDL402996

PATIENT

DRUGS (1)
  1. ENBREL [Suspect]
     Indication: PSORIASIS
     Dosage: 50 MG, 2 TIMES/WK
     Route: 058
     Dates: start: 20100212

REACTIONS (8)
  - APPENDICITIS [None]
  - IMPAIRED HEALING [None]
  - NASOPHARYNGITIS [None]
  - OROPHARYNGEAL PAIN [None]
  - STRESS [None]
  - THERAPEUTIC RESPONSE DECREASED [None]
  - TINNITUS [None]
  - WEIGHT DECREASED [None]
